FAERS Safety Report 8378038-1 (Version None)
Quarter: 2012Q2

REPORT INFORMATION
  Report Type: 
  Country: None (occurrence: None)
  Receive Date: 20120522
  Receipt Date: 20120516
  Transmission Date: 20120825
  Serious: Yes (Hospitalization)
  Sender: FDA-Public Use
  Company Number: IL-ABBOTT-12P-082-0936448-00

PATIENT
  Sex: Male

DRUGS (2)
  1. HUMIRA [Suspect]
     Indication: CROHN'S DISEASE
     Route: 058
     Dates: start: 20120316, end: 20120429
  2. IMURAN [Concomitant]
     Indication: CROHN'S DISEASE
     Dates: end: 20120429

REACTIONS (1)
  - COLECTOMY [None]
